FAERS Safety Report 19799209 (Version 1)
Quarter: 2021Q3

REPORT INFORMATION
  Report Type: Spontaneous
  Country: US (occurrence: US)
  Receive Date: 20210907
  Receipt Date: 20210907
  Transmission Date: 20211014
  Serious: Yes (Death, Hospitalization)
  Sender: FDA-Public Use
  Company Number: US-UPSHER-SMITH LABORATORIES, LLC-2021USL00601

PATIENT
  Age: 91 Year
  Sex: Female
  Weight: 43.09 kg

DRUGS (4)
  1. FUROSEMIDE. [Concomitant]
     Active Substance: FUROSEMIDE
  2. PROCARDIA [Concomitant]
     Active Substance: NIFEDIPINE
  3. KLOR?CON M [Suspect]
     Active Substance: POTASSIUM CHLORIDE
     Indication: BLOOD POTASSIUM DECREASED
     Dosage: 20 MEQ
  4. SYMBICORT [Concomitant]
     Active Substance: BUDESONIDE\FORMOTEROL FUMARATE DIHYDRATE

REACTIONS (6)
  - Respiration abnormal [Fatal]
  - Unevaluable event [Unknown]
  - Asthenia [Unknown]
  - Constipation [Fatal]
  - Functional gastrointestinal disorder [Fatal]
  - Fatigue [Unknown]
